FAERS Safety Report 11227575 (Version 1)
Quarter: 2015Q2

REPORT INFORMATION
  Report Type: Spontaneous
  Country: US (occurrence: None)
  Receive Date: 20150626
  Receipt Date: 20150626
  Transmission Date: 20150821
  Serious: Yes (Hospitalization)
  Sender: FDA-Public Use
  Company Number: None

PATIENT
  Age: 24 Year
  Sex: Female
  Weight: 72.58 kg

DRUGS (5)
  1. WOMENS ONE DAILY MULTI-VITAMIN [Concomitant]
  2. TYLENOL [Concomitant]
     Active Substance: ACETAMINOPHEN
  3. IBUPROFEN. [Concomitant]
     Active Substance: IBUPROFEN
  4. MIRENA [Suspect]
     Active Substance: LEVONORGESTREL
     Indication: CONTRACEPTION
     Dosage: 1 IUD ONCE EVERY 5 YEARS
     Route: 067
     Dates: start: 20150101, end: 20150623
  5. FLUOXATINE [Concomitant]

REACTIONS (3)
  - Muscle spasms [None]
  - Abdominal pain [None]
  - Device dislocation [None]

NARRATIVE: CASE EVENT DATE: 20150623
